FAERS Safety Report 16207630 (Version 8)
Quarter: 2020Q3

REPORT INFORMATION
  Report Type: Spontaneous
  Country: US (occurrence: US)
  Receive Date: 20190417
  Receipt Date: 20200707
  Transmission Date: 20201102
  Serious: No
  Sender: FDA-Public Use
  Company Number: US-PFIZER INC-2019157594

PATIENT
  Age: 72 Year
  Sex: Female
  Weight: 109 kg

DRUGS (23)
  1. LYRICA [Suspect]
     Active Substance: PREGABALIN
     Indication: NEUROPATHY PERIPHERAL
     Dosage: 75 MG, 2X/DAY
     Route: 048
     Dates: start: 20190403
  2. LYRICA [Suspect]
     Active Substance: PREGABALIN
     Dosage: 75 MG, 4X/DAY(75MG CAPSULE IN MORNING, 75MG CAPSULE IN AFTERNOON, TWO 75MG CAPSULES AT NIGHT(150MG)
     Route: 048
     Dates: start: 201904
  3. HCTZ [Concomitant]
     Active Substance: HYDROCHLOROTHIAZIDE
     Indication: DIURETIC THERAPY
     Dosage: 25 MG, DAILY (25MG 1 TABLET BY MOUTH DAILY)
     Route: 048
     Dates: end: 20190922
  4. ACETAMINOPHEN. [Concomitant]
     Active Substance: ACETAMINOPHEN
     Indication: NERVE INJURY
     Dosage: 500 MG, 1X/DAY(2 AT NIGHT)
     Dates: start: 201904
  5. TURMERIC CURCUMIN [Concomitant]
     Active Substance: HERBALS\TURMERIC
     Indication: INFLAMMATION
     Dosage: 500 MG, 1X/DAY (25MG 1 TABLET BY MOUTH AT NIGHT)
     Route: 048
  6. VITAMIN B COMPLEX [Concomitant]
     Active Substance: CYANOCOBALAMIN\DEXPANTHENOL\NIACINAMIDE\PYRIDOXINE HYDROCHLORIDE\RIBOFLAVIN 5^-PHOSPHATE SODIUM\THIAMINE HYDROCHLORIDE\VITAMIN B COMPLEX
     Indication: NEUROPATHY PERIPHERAL
     Dosage: 1 DF, 1X/DAY(1 TABLET BY MOUTH DAILY)
     Route: 048
  7. VITAMIN B COMPLEX [Concomitant]
     Active Substance: CYANOCOBALAMIN\DEXPANTHENOL\NIACINAMIDE\PYRIDOXINE HYDROCHLORIDE\RIBOFLAVIN 5^-PHOSPHATE SODIUM\THIAMINE HYDROCHLORIDE\VITAMIN B COMPLEX
     Indication: PAIN IN EXTREMITY
  8. GLUCOSAMINE CHONDROITIN [CHONDROITIN SULFATE;GLUCOSAMINE] [Concomitant]
     Indication: ARTHRALGIA
     Dosage: 100 MG, 2X/DAY (100MG 2 TABLETS BY MOUTH DAILY)
     Route: 048
  9. LISINOPRIL. [Concomitant]
     Active Substance: LISINOPRIL
     Indication: HYPERTENSION
  10. TYLENOL [Concomitant]
     Active Substance: ACETAMINOPHEN
     Dosage: UNK, AS NEEDED
  11. NORTRIPTYLINE [Concomitant]
     Active Substance: NORTRIPTYLINE
     Indication: NEURALGIA
     Dosage: 25 MG, 1X/DAY (25MG 1 TABLET BY MOUTH AT NIGHT)
     Route: 048
  12. OMEPRAZOLE. [Concomitant]
     Active Substance: OMEPRAZOLE
     Indication: BARRETT^S OESOPHAGUS
     Dosage: 20 MG, ALTERNATE DAY (20MG EVERY OTHER DAY)
  13. LYRICA [Suspect]
     Active Substance: PREGABALIN
     Indication: FIBROMYALGIA
     Dosage: 225 MG, DAILY
     Route: 048
  14. LISINOPRIL. [Concomitant]
     Active Substance: LISINOPRIL
     Indication: BLOOD PRESSURE ABNORMAL
     Dosage: 40 MG, DAILY
     Route: 048
  15. TEMAZEPAM. [Concomitant]
     Active Substance: TEMAZEPAM
     Indication: SLEEP DISORDER
     Dosage: 15 MG, 1X/DAY (15MG 1 CAPSULE BY MOUTH AT NIGHT)
     Route: 048
  16. ATORVASTATIN [Concomitant]
     Active Substance: ATORVASTATIN
     Indication: HEART VALVE CALCIFICATION
     Dosage: 1 DF, 1X/DAY(1 PILL BY MOUTH AT NIGHT)
     Route: 048
     Dates: start: 201902
  17. LYRICA [Suspect]
     Active Substance: PREGABALIN
     Dosage: 75 MG, 3X/DAY (1 CAPSULE ONE TABLET IN AM, ONE TABLET AT 3PM, AND 1 TABLET AT HS (BEDTIME) 90 DAYS)
  18. NORTRIPTYLINE [Concomitant]
     Active Substance: NORTRIPTYLINE
     Indication: SLEEP DISORDER
  19. VITAMIN C [Concomitant]
     Active Substance: ASCORBIC ACID
     Indication: NASOPHARYNGITIS
     Dosage: 500 MG, 1X/DAY(500MG 1 TABLET BY MOUTH A DAY)
     Route: 048
  20. VITAMIN B12 [Concomitant]
     Active Substance: CYANOCOBALAMIN
     Indication: NERVOUS SYSTEM DISORDER
     Dosage: 1 DF, 1X/DAY (1 TAB BY MOUTH DAILY)
     Route: 048
  21. DULCOLAX (BISACODYL) [Concomitant]
     Active Substance: BISACODYL
     Indication: DYSCHEZIA
     Dosage: 2 DF, 2X/DAY (2 GEL CAPS BY MOUTH AT NIGHT)
     Route: 048
     Dates: start: 2014
  22. ESTRACE [Concomitant]
     Active Substance: ESTRADIOL
     Indication: VAGINAL DISORDER
     Dosage: UNK, 2X/WEEK (APPLIES CREAM TWICE A WEEK)
  23. VITAMIN D3 [Concomitant]
     Active Substance: CHOLECALCIFEROL
     Indication: BONE DENSITY ABNORMAL
     Dosage: 1 DF, DAILY (1 GEL PILL BY MOUTH DAILY)
     Route: 048

REACTIONS (4)
  - Drug ineffective [Unknown]
  - Rash [Not Recovered/Not Resolved]
  - Burning sensation [Unknown]
  - Tremor [Unknown]

NARRATIVE: CASE EVENT DATE: 201904
